FAERS Safety Report 7233333-4 (Version None)
Quarter: 2011Q1

REPORT INFORMATION
  Report Type: 
  Country: None (occurrence: None)
  Receive Date: 20110119
  Receipt Date: 20110106
  Transmission Date: 20110831
  Serious: Yes (Hospitalization, Other)
  Sender: FDA-Public Use
  Company Number: US-ROCHE-731221

PATIENT
  Sex: Male
  Weight: 90.7 kg

DRUGS (4)
  1. ACCUTANE [Suspect]
     Indication: ACNE
     Route: 065
     Dates: start: 19840101
  2. TETRACYCLINE [Concomitant]
     Dates: start: 19840101, end: 19850101
  3. ACCUTANE [Suspect]
     Route: 065
     Dates: start: 19850101
  4. ERYTHROMYCIN [Concomitant]
     Dates: start: 19840101, end: 19850101

REACTIONS (8)
  - DEPRESSION [None]
  - INFLAMMATORY BOWEL DISEASE [None]
  - FRACTURE [None]
  - GASTROINTESTINAL INJURY [None]
  - IRRITABLE BOWEL SYNDROME [None]
  - INTESTINAL HAEMORRHAGE [None]
  - SUICIDE ATTEMPT [None]
  - COLITIS ULCERATIVE [None]
